FAERS Safety Report 5117653-5 (Version None)
Quarter: 2006Q3

REPORT INFORMATION
  Report Type: 
  Country: None (occurrence: None)
  Receive Date: 20060929
  Receipt Date: 20060801
  Transmission Date: 20061208
  Serious: Yes (Hospitalization, Other)
  Sender: FDA-Public Use
  Company Number: US-BRISTOL-MYERS SQUIBB COMPANY-13461413

PATIENT
  Age: 47 Year
  Sex: Female
  Weight: 77 kg

DRUGS (10)
  1. ORENCIA [Suspect]
     Indication: RHEUMATOID ARTHRITIS
     Route: 042
     Dates: start: 20060320
  2. REGULAR INSULIN [Concomitant]
  3. NPH INSULIN [Concomitant]
  4. BENICAR [Concomitant]
  5. CALCIUM GLUCONATE [Concomitant]
  6. MULTI-VITAMIN [Concomitant]
  7. MEDROL [Concomitant]
  8. VICODIN [Concomitant]
  9. AMBIEN [Concomitant]
  10. ZYRTEC [Concomitant]

REACTIONS (4)
  - BLOOD GLUCOSE DECREASED [None]
  - HAIR GROWTH ABNORMAL [None]
  - HIP ARTHROPLASTY [None]
  - SKIN DISORDER [None]
